FAERS Safety Report 25665389 (Version 2)
Quarter: 2025Q4

REPORT INFORMATION
  Report Type: Spontaneous
  Country: EU (occurrence: EU)
  Receive Date: 20250811
  Receipt Date: 20251019
  Transmission Date: 20260118
  Serious: Yes (Death, Other)
  Sender: MSN LABORATORIES PRIVATE LIMITED
  Company Number: EU-MSNLABS-2025MSNLIT02118

PATIENT

DRUGS (6)
  1. SUNITINIB [Suspect]
     Active Substance: SUNITINIB
     Indication: Gastrointestinal stromal tumour
     Dosage: 50 MG/DAY FOR 28 DAYS FOLLOWED BY A 14-DAY BREAK
     Route: 065
  2. SUNITINIB [Suspect]
     Active Substance: SUNITINIB
     Indication: Hepatic neoplasm
  3. FERROUS SULFATE [Concomitant]
     Active Substance: FERROUS SULFATE
     Indication: Anaemia
     Route: 065
  4. ESOMEPRAZOLE [Concomitant]
     Active Substance: ESOMEPRAZOLE
     Route: 065
  5. ACETAMINOPHEN\TRAMADOL [Concomitant]
     Active Substance: ACETAMINOPHEN\TRAMADOL
     Indication: Pain management
     Dosage: UNK, AS NEEDED UP TO 3 TIMES/DAY
     Route: 065
  6. LIV 52 [ACHILLEA MILLEFOLIUM;AYURVEDIC PREPARATION NOS;CAPPARIS SPINOS [Concomitant]
     Route: 065

REACTIONS (12)
  - Cataract [Unknown]
  - Drug resistance [Unknown]
  - Arterial stenosis [Unknown]
  - Onycholysis [Unknown]
  - Nail bed disorder [Unknown]
  - Hypertension [Unknown]
  - Alopecia [Unknown]
  - Disease progression [Fatal]
  - Gastrointestinal stromal tumour [Fatal]
  - Anaemia [Unknown]
  - Leukopenia [Unknown]
  - Neutropenia [Unknown]
